FAERS Safety Report 7394387-8 (Version None)
Quarter: 2011Q1

REPORT INFORMATION
  Report Type: 
  Country: None (occurrence: None)
  Receive Date: 20110301
  Receipt Date: 20100818
  Transmission Date: 20110831
  Serious: Yes (Disabling, Other)
  Sender: FDA-Public Use
  Company Number: ALA_00841_2010

PATIENT
  Sex: Female

DRUGS (2)
  1. REGLAN [Suspect]
     Indication: ABDOMINAL DISTENSION
     Dosage: (DF ORAL)
     Route: 048
     Dates: start: 20060101, end: 20100201
  2. REGLAN [Suspect]
     Indication: DYSPEPSIA
     Dosage: (DF ORAL)
     Route: 048
     Dates: start: 20060101, end: 20100201

REACTIONS (2)
  - TARDIVE DYSKINESIA [None]
  - INCORRECT DRUG ADMINISTRATION DURATION [None]
